FAERS Safety Report 8170851-9 (Version None)
Quarter: 2012Q1

REPORT INFORMATION
  Report Type: 
  Country: None (occurrence: None)
  Receive Date: 20120104
  Receipt Date: 20111207
  Transmission Date: 20120608
  Serious: No
  Sender: FDA-Public Use
  Company Number: 2011HGS-002935

PATIENT
  Age: 66 Year
  Sex: Female
  Weight: 68.0396 kg

DRUGS (9)
  1. METHYLPREDNISONE(METHYLPREDNISOLONE) (METHYLPREDNISOLONE) [Concomitant]
  2. LISINOPRIL [Concomitant]
  3. METHOTREXATE [Concomitant]
  4. OMEPRAZOLE [Concomitant]
  5. VOLTAREN (DICLOFENAC POTASSIUM) (DICLOFENAC POTASSIUM) [Concomitant]
  6. SOMA ( CARISOPRODOL) ( CARISOPRODOL ) [Concomitant]
  7. TRAVATAN(TRAVOPROST) (TRAVOPROST) [Concomitant]
  8. BENLYSTA [Suspect]
     Indication: SYSTEMIC LUPUS ERYTHEMATOSUS
     Dosage: 10 MG/KG, 1 IN 28 D, INTRAVENOUS DRIP
     Route: 041
     Dates: start: 20110831
  9. AZASITE (AZ ITHROMYCIN) ( AZ ITHROMYCIN) [Concomitant]

REACTIONS (1)
  - PAIN [None]
